FAERS Safety Report 9146277 (Version 1)
Quarter: 2013Q1

REPORT INFORMATION
  Report Type: Spontaneous
  Country: US (occurrence: None)
  Receive Date: 20130219
  Receipt Date: 20130219
  Transmission Date: 20140127
  Serious: Yes (Death, Hospitalization, Disabling, Other)
  Sender: FDA-Public Use
  Company Number: 2013P1002108

PATIENT
  Age: 89 Year
  Sex: Female

DRUGS (2)
  1. CIPROFLOXACIN [Suspect]
     Indication: URINARY TRACT INFECTION
     Dates: start: 2005
  2. ZYPREXA [Suspect]

REACTIONS (4)
  - Dysstasia [None]
  - Cardiac failure [None]
  - Foot deformity [None]
  - Contrast media reaction [None]
